FAERS Safety Report 21146481 (Version 1)
Quarter: 2022Q3

REPORT INFORMATION
  Report Type: Other
  Country: UA (occurrence: None)
  Receive Date: 20220729
  Receipt Date: 20220729
  Transmission Date: 20221027
  Serious: Yes (Other)
  Sender: FDA-Public Use
  Company Number: UA-ROCHE-2861557

PATIENT

DRUGS (4)
  1. TOCILIZUMAB [Suspect]
     Active Substance: TOCILIZUMAB
     Indication: Cytokine storm
     Dosage: TREATMENT WITH TOCILIZUMAB WAS STARTED BETWEEN TWO CONSECUTIVE DAYS 8 AND DAY 14 FROM THE ONSET OF S
     Route: 042
  2. TOCILIZUMAB [Suspect]
     Active Substance: TOCILIZUMAB
     Indication: COVID-19
  3. DEXAMETHASONE [Concomitant]
     Active Substance: DEXAMETHASONE
     Indication: COVID-19
     Route: 042
  4. HEPARIN [Concomitant]
     Active Substance: HEPARIN SODIUM
     Indication: COVID-19
     Dosage: LOW-MOLECULAR-WEIGHT, PROPHYLACTIC DOSES
     Route: 058

REACTIONS (7)
  - Neutropenia [Unknown]
  - Sepsis [Unknown]
  - Off label use [Unknown]
  - Leukocytosis [Unknown]
  - Thrombocytopenia [Unknown]
  - Alanine aminotransferase increased [Unknown]
  - Hypertension [Unknown]
